FAERS Safety Report 17140612 (Version 1)
Quarter: 2019Q4

REPORT INFORMATION
  Report Type: Spontaneous
  Country: FR (occurrence: FR)
  Receive Date: 20191211
  Receipt Date: 20191211
  Transmission Date: 20200122
  Serious: Yes (Life-Threatening)
  Sender: FDA-Public Use
  Company Number: FR-TEVA-2019-FR-1148251

PATIENT
  Age: 26 Year
  Sex: Female
  Weight: 60 kg

DRUGS (17)
  1. INEXIUM 20 MG, COMPRIM? GASTRO-R?SISTANT [Concomitant]
     Active Substance: ESOMEPRAZOLE MAGNESIUM
  2. DECAPEPTYL [Concomitant]
  3. OXYNORM [Concomitant]
     Active Substance: OXYCODONE HYDROCHLORIDE
  4. CARMUSTINE. [Suspect]
     Active Substance: CARMUSTINE
     Indication: HODGKIN^S DISEASE
     Dosage: CYCLE BEAM C1J1
     Route: 042
     Dates: start: 20191012, end: 20191012
  5. TOBRADEX [Concomitant]
     Active Substance: DEXAMETHASONE\TOBRAMYCIN
  6. TAZOCILLINE [Concomitant]
     Active Substance: PIPERACILLIN SODIUM\TAZOBACTAM SODIUM
  7. EMEND 125 MG, G?LULE ET EMEND 80 MG, G?LULE [Concomitant]
  8. MELPHALAN. [Suspect]
     Active Substance: MELPHALAN
     Indication: HODGKIN^S DISEASE
     Dosage: J5 BEAM
     Route: 042
     Dates: start: 20191016, end: 20191016
  9. NEULASTA [Concomitant]
     Active Substance: PEGFILGRASTIM
  10. DIFICLIR 200 MG, COMPRIM? PELLICUL? [Concomitant]
     Active Substance: FIDAXOMICIN
  11. CYTARABINE. [Suspect]
     Active Substance: CYTARABINE
     Indication: HODGKIN^S DISEASE
     Dosage: AS PART OF A DHAX TO J1 AND THEN A BEAM FROM J2 TO J5
     Route: 042
     Dates: start: 20191013, end: 20191016
  12. SPECIAFOLDINE 5 MG, COMPRIM? [Concomitant]
     Active Substance: FOLIC ACID
  13. ETOPOSIDE. [Suspect]
     Active Substance: ETOPOSIDE
     Indication: HODGKIN^S DISEASE
     Dosage: FROM J2 TO J4 FROM BEAM
     Route: 042
     Dates: start: 20191013, end: 20191016
  14. ZELITREX 500 MG, COMPRIM? ENROB? [Concomitant]
     Active Substance: VALACYCLOVIR HYDROCHLORIDE
  15. TRIFLUCAN [Concomitant]
     Active Substance: FLUCONAZOLE
  16. ZOPHREN [Concomitant]
     Active Substance: ONDANSETRON
  17. PLITICAN, SOLUTION INJECTABLE [Concomitant]
     Active Substance: ALIZAPRIDE HYDROCHLORIDE

REACTIONS (1)
  - Venoocclusive liver disease [Recovering/Resolving]

NARRATIVE: CASE EVENT DATE: 20191029
